FAERS Safety Report 16023374 (Version 2)
Quarter: 2019Q4

REPORT INFORMATION
  Report Type: Spontaneous
  Country: US (occurrence: US)
  Receive Date: 20190301
  Receipt Date: 20191122
  Transmission Date: 20200122
  Serious: No
  Sender: FDA-Public Use
  Company Number: US-GLAXOSMITHKLINE-US2019031686

PATIENT
  Age: 29 Year
  Sex: Female

DRUGS (2)
  1. ADVAIR HFA [Suspect]
     Active Substance: FLUTICASONE PROPIONATE\SALMETEROL XINAFOATE
     Indication: ASTHMA
     Dosage: 2 PUFF(S), BID
     Route: 055
     Dates: start: 2004
  2. ZYRTEX [Concomitant]
     Dosage: UNK

REACTIONS (1)
  - Exposure during pregnancy [Unknown]

NARRATIVE: CASE EVENT DATE: 20190106
